FAERS Safety Report 10155818 (Version 1)
Quarter: 2014Q2

REPORT INFORMATION
  Report Type: Report from Study
  Country: DE (occurrence: JP)
  Receive Date: 20140506
  Receipt Date: 20140506
  Transmission Date: 20141212
  Serious: Yes (Hospitalization)
  Sender: FDA-Public Use
  Company Number: JP-FRI-1000066882

PATIENT
  Sex: Female
  Weight: 42 kg

DRUGS (8)
  1. MEMANTINE [Suspect]
     Dosage: 5 MG
     Route: 048
     Dates: start: 20120823, end: 20120829
  2. MEMANTINE [Suspect]
     Dosage: 10 MG
     Route: 048
     Dates: start: 20120830, end: 20120906
  3. MEMANTINE [Suspect]
     Dosage: 15 MG
     Route: 048
     Dates: start: 20120907, end: 20120913
  4. MEMANTINE [Suspect]
     Dosage: 20 MG
     Route: 048
     Dates: start: 20120914, end: 20130109
  5. RISPERIDONE [Suspect]
     Indication: BEHAVIOURAL AND PSYCHIATRIC SYMPTOMS OF DEMENTIA
     Dosage: APPROPRIATELY, AS NEEDED
     Route: 048
     Dates: start: 20120823, end: 20130109
  6. ARICEPT [Concomitant]
     Dates: end: 20121212
  7. AMLODIN [Concomitant]
     Dates: end: 20130109
  8. FRANDOL [Concomitant]
     Dates: end: 20130109

REACTIONS (1)
  - Pneumonia aspiration [Recovering/Resolving]
